FAERS Safety Report 6028419-6 (Version None)
Quarter: 2009Q1

REPORT INFORMATION
  Report Type: 
  Country: None (occurrence: None)
  Receive Date: 20090106
  Receipt Date: 20081230
  Transmission Date: 20090719
  Serious: Yes (Hospitalization)
  Sender: FDA-Public Use
  Company Number: US-BAYER-200837051NA

PATIENT
  Age: 37 Year
  Sex: Female
  Weight: 127 kg

DRUGS (1)
  1. MIRENA [Suspect]
     Indication: MENORRHAGIA
     Route: 015
     Dates: start: 20071207, end: 20081001

REACTIONS (2)
  - INTRA-UTERINE CONTRACEPTIVE DEVICE EXPELLED [None]
  - MENORRHAGIA [None]
